FAERS Safety Report 21386517 (Version 1)
Quarter: 2022Q3

REPORT INFORMATION
  Report Type: Spontaneous
  Country: AU (occurrence: AU)
  Receive Date: 20220928
  Receipt Date: 20220928
  Transmission Date: 20221027
  Serious: Yes (Other)
  Sender: FDA-Public Use
  Company Number: AU-GLAXOSMITHKLINE-AU2022APC136118

PATIENT

DRUGS (2)
  1. VENTOLIN [Suspect]
     Active Substance: ALBUTEROL SULFATE
     Indication: Product used for unknown indication
     Dosage: UNK
  2. SPIKEVAX [Suspect]
     Active Substance: ELASOMERAN
     Indication: COVID-19 prophylaxis
     Dosage: UNK

REACTIONS (3)
  - Seizure [Unknown]
  - Upper limb fracture [Unknown]
  - Tongue injury [Unknown]

NARRATIVE: CASE EVENT DATE: 20220131
